FAERS Safety Report 4909688-X (Version None)
Quarter: 2006Q1

REPORT INFORMATION
  Report Type: 
  Country: None (occurrence: None)
  Receive Date: 20060208
  Receipt Date: 20060202
  Transmission Date: 20060701
  Serious: Yes (Other)
  Sender: FDA-Public Use
  Company Number: 2006S1000030

PATIENT
  Age: 61 Year
  Sex: Male

DRUGS (5)
  1. CUBICIN [Suspect]
     Indication: OSTEOMYELITIS
     Dosage: 6 MG/KG; Q24H;
     Dates: start: 20031201, end: 20040101
  2. CUBICIN [Suspect]
     Indication: STAPHYLOCOCCAL BACTERAEMIA
     Dosage: 6 MG/KG; Q24H;
     Dates: start: 20031201, end: 20040101
  3. VANCOMYCIN [Concomitant]
  4. GENTAMICIN [Concomitant]
  5. LINEZOLID [Concomitant]

REACTIONS (6)
  - ACUTE MYELOID LEUKAEMIA RECURRENT [None]
  - DISEASE RECURRENCE [None]
  - INTERVERTEBRAL DISCITIS [None]
  - STAPHYLOCOCCAL BACTERAEMIA [None]
  - THERAPY NON-RESPONDER [None]
  - THROMBOCYTOPENIA [None]
